FAERS Safety Report 20786400 (Version 2)
Quarter: 2023Q2

REPORT INFORMATION
  Report Type: Spontaneous
  Country: US (occurrence: None)
  Receive Date: 20220504
  Receipt Date: 20230511
  Transmission Date: 20230722
  Serious: No
  Sender: FDA-Public Use
  Company Number: US-ROCHE-3057082

PATIENT
  Sex: Female
  Weight: 108.96 kg

DRUGS (1)
  1. OCREVUS [Suspect]
     Active Substance: OCRELIZUMAB
     Indication: Relapsing-remitting multiple sclerosis
     Dosage: ONGOING: YES
     Route: 065
     Dates: start: 202104

REACTIONS (4)
  - Chest pain [Unknown]
  - Pulmonary mass [Unknown]
  - Thyroid mass [Unknown]
  - Costochondritis [Unknown]
